FAERS Safety Report 7728103-4 (Version None)
Quarter: 2011Q3

REPORT INFORMATION
  Report Type: 
  Country: None (occurrence: None)
  Receive Date: 20110905
  Receipt Date: 20100114
  Transmission Date: 20111222
  Serious: No
  Sender: FDA-Public Use
  Company Number: 2008BI022321

PATIENT
  Age: 49 Year
  Sex: Female

DRUGS (1)
  1. TYSABRI [Suspect]
     Indication: MULTIPLE SCLEROSIS
     Route: 042
     Dates: start: 20080625

REACTIONS (17)
  - DIPLOPIA [None]
  - PREMATURE MENOPAUSE [None]
  - INFLUENZA LIKE ILLNESS [None]
  - PAIN [None]
  - ASTHENIA [None]
  - HYPERHIDROSIS [None]
  - SKIN DISCOLOURATION [None]
  - MUSCULOSKELETAL PAIN [None]
  - HYPERSOMNIA [None]
  - NAUSEA [None]
  - MOBILITY DECREASED [None]
  - TEMPERATURE INTOLERANCE [None]
  - DYSGEUSIA [None]
  - POOR VENOUS ACCESS [None]
  - HEADACHE [None]
  - FATIGUE [None]
  - STRESS [None]
